FAERS Safety Report 7051025-1 (Version None)
Quarter: 2010Q4

REPORT INFORMATION
  Report Type: 
  Country: None (occurrence: None)
  Receive Date: 20101019
  Receipt Date: 20100322
  Transmission Date: 20110411
  Serious: Yes (Hospitalization)
  Sender: FDA-Public Use
  Company Number: US-BAYER-200939094NA

PATIENT
  Age: 18 Year
  Sex: Female
  Weight: 64 kg

DRUGS (5)
  1. YAZ [Suspect]
     Indication: ACNE
     Dosage: 3.0/0.03MG/1 PER DAY
     Route: 048
     Dates: start: 20070825, end: 20071030
  2. DOXYCYCLINE HYCLATE [Concomitant]
     Dosage: 100 MG
  3. HYDROCODONE BITARTRATE AND ACETAMINOPHEN [Concomitant]
     Dosage: 5MG/500MG TABS
  4. TRETINOIN [Concomitant]
     Dosage: 0.05%
  5. MYLANTA [Concomitant]

REACTIONS (8)
  - ANAEMIA [None]
  - BACK PAIN [None]
  - HAEMOPTYSIS [None]
  - MUSCULOSKELETAL PAIN [None]
  - PAIN IN EXTREMITY [None]
  - PLEURAL EFFUSION [None]
  - PULMONARY EMBOLISM [None]
  - PULMONARY INFARCTION [None]
